FAERS Safety Report 13581723 (Version 8)
Quarter: 2018Q2

REPORT INFORMATION
  Report Type: Spontaneous
  Country: JP (occurrence: JP)
  Receive Date: 20170525
  Receipt Date: 20180523
  Transmission Date: 20180711
  Serious: Yes (Death, Other)
  Sender: FDA-Public Use
  Company Number: JP-009507513-1705JPN001363J

PATIENT
  Age: 34 Year
  Sex: Female
  Weight: 53 kg

DRUGS (5)
  1. ETIZOLAM [Concomitant]
     Active Substance: ETIZOLAM
     Indication: PROPHYLAXIS
     Dosage: 1.0 MG, QD
     Route: 048
     Dates: end: 20170501
  2. ELIQUIS [Concomitant]
     Active Substance: APIXABAN
     Indication: THROMBOSIS
     Dosage: UNK
     Route: 048
     Dates: start: 201703
  3. NEXIUM [Concomitant]
     Active Substance: ESOMEPRAZOLE MAGNESIUM
     Indication: PROPHYLAXIS
     Dosage: 20.0 MG, QD
     Route: 048
  4. KEYTRUDA [Suspect]
     Active Substance: PEMBROLIZUMAB
     Indication: LUNG ADENOCARCINOMA STAGE IV
     Dosage: 200 MG, Q3W
     Route: 041
     Dates: start: 20170501, end: 20170501
  5. PREDNISOLONE. [Concomitant]
     Active Substance: PREDNISOLONE
     Dosage: 40.0 MG, QD
     Route: 048
     Dates: end: 20170501

REACTIONS (1)
  - Respiratory failure [Fatal]

NARRATIVE: CASE EVENT DATE: 20170501
